FAERS Safety Report 9351643 (Version 1)
Quarter: 2013Q2

REPORT INFORMATION
  Report Type: Spontaneous
  Country: BR (occurrence: BR)
  Receive Date: 20130617
  Receipt Date: 20130617
  Transmission Date: 20140414
  Serious: Yes (Other)
  Sender: FDA-Public Use
  Company Number: BR-BAYER-2013-071910

PATIENT
  Sex: Female

DRUGS (1)
  1. QLAIRA [Suspect]
     Dosage: UNK
     Route: 048
     Dates: start: 2011

REACTIONS (7)
  - Metrorrhagia [Not Recovered/Not Resolved]
  - Abdominal pain [Not Recovered/Not Resolved]
  - Drug dose omission [None]
  - Genital contusion [None]
  - Metrorrhagia [None]
  - Pregnancy on oral contraceptive [None]
  - Infection [None]
